FAERS Safety Report 6055240-5 (Version None)
Quarter: 2009Q1

REPORT INFORMATION
  Report Type: 
  Country: None (occurrence: None)
  Receive Date: 20090123
  Receipt Date: 20090108
  Transmission Date: 20090719
  Serious: No
  Sender: FDA-Public Use
  Company Number: C-09-0005

PATIENT
  Sex: Male

DRUGS (1)
  1. LIDOCAINE HCL ORAL TOPICAL SOLUTION, USP 2% (MGP) [Suspect]
     Dosage: ORAL
     Route: 048

REACTIONS (3)
  - ARRHYTHMIA [None]
  - ATRIAL FLUTTER [None]
  - BLOOD PRESSURE INCREASED [None]
